FAERS Safety Report 8535092-1 (Version None)
Quarter: 2012Q3

REPORT INFORMATION
  Report Type: 
  Country: None (occurrence: None)
  Receive Date: 20120724
  Receipt Date: 20071125
  Transmission Date: 20120928
  Serious: Yes (Other)
  Sender: FDA-Public Use
  Company Number: CO-PFIZER INC-2012177700

PATIENT
  Age: 77 Year
  Sex: Male

DRUGS (5)
  1. ACETYLSALICYLIC ACID [Concomitant]
     Dosage: 100 MG, 1X/DAY
  2. QUINAPRIL AND HYDROCHLOROTHIAZIDE [Suspect]
     Indication: HYPERTENSION
     Dosage: 32.5 MG, 2X/DAY
  3. NORVASC [Suspect]
     Indication: HYPERTENSION
     Dosage: 5 MG, 1X/DAY
  4. LIPITOR [Suspect]
     Indication: DYSLIPIDAEMIA
     Dosage: 5 MG, 1X/DAY
  5. THEOPHYLLINE [Concomitant]
     Dosage: 125 MG, 2X/DAY

REACTIONS (4)
  - HEART SOUNDS ABNORMAL [None]
  - CARDIAC DISORDER [None]
  - TOBACCO USER [None]
  - ANGIOPATHY [None]
